FAERS Safety Report 25118695 (Version 1)
Quarter: 2025Q1

REPORT INFORMATION
  Report Type: Spontaneous
  Country: US (occurrence: US)
  Receive Date: 20250325
  Receipt Date: 20250325
  Transmission Date: 20250409
  Serious: No
  Sender: PFIZER
  Company Number: US-PFIZER INC-PV202500034706

PATIENT
  Age: 14 Year
  Sex: Female
  Weight: 50.9 kg

DRUGS (1)
  1. GENOTROPIN [Suspect]
     Active Substance: SOMATROPIN
     Indication: Growth hormone deficiency
     Dosage: 2.4 MG, DAILY
     Route: 058

REACTIONS (2)
  - Migraine [Unknown]
  - Therapeutic product effect incomplete [Unknown]
